FAERS Safety Report 8684621 (Version 5)
Quarter: 2013Q4

REPORT INFORMATION
  Report Type: Report from Study
  Country: SE (occurrence: SE)
  Receive Date: 20120726
  Receipt Date: 20131205
  Transmission Date: 20140711
  Serious: Yes (Life-Threatening)
  Sender: FDA-Public Use
  Company Number: SE-ROCHE-1092689

PATIENT
  Age: 61 Year
  Sex: Male
  Weight: 92 kg

DRUGS (8)
  1. PEGASYS [Suspect]
     Indication: HEPATITIS C
     Route: 058
     Dates: start: 20120425, end: 20120709
  2. COPEGUS [Suspect]
     Indication: HEPATITIS C
     Route: 048
     Dates: start: 20120425, end: 20120709
  3. INCIVO [Suspect]
     Indication: HEPATITIS C
     Route: 048
     Dates: start: 20120425, end: 20120709
  4. CITALOPRAM [Concomitant]
     Indication: DEPRESSION
     Route: 048
     Dates: start: 20120413
  5. TAVEGYL [Concomitant]
     Indication: PRURITUS
     Route: 048
     Dates: start: 20120620, end: 201208
  6. ZYRLEX [Concomitant]
     Indication: PRURITUS
     Route: 048
     Dates: start: 20120424, end: 201208
  7. IMOVANE [Concomitant]
     Indication: INSOMNIA
     Route: 048
     Dates: start: 20120424, end: 20120709
  8. PRIMPERAN (SWEDEN) [Concomitant]
     Indication: NAUSEA
     Route: 048
     Dates: start: 20120411

REACTIONS (6)
  - Ascites [Recovered/Resolved]
  - Hepatic cirrhosis [Recovered/Resolved]
  - Rash [Recovered/Resolved]
  - Pruritus generalised [Unknown]
  - Testicular swelling [Unknown]
  - Dermatitis [Unknown]
